FAERS Safety Report 15950926 (Version 3)
Quarter: 2019Q2

REPORT INFORMATION
  Report Type: Report from Study
  Country: US (occurrence: US)
  Receive Date: 20190212
  Receipt Date: 20190606
  Transmission Date: 20190711
  Serious: Yes (Other)
  Sender: FDA-Public Use
  Company Number: US-ALEXION PHARMACEUTICALS INC.-A201901963

PATIENT
  Sex: Male

DRUGS (3)
  1. SOLIRIS [Suspect]
     Active Substance: ECULIZUMAB
     Dosage: UNK, QMONTH
     Route: 065
  2. SOLIRIS [Suspect]
     Active Substance: ECULIZUMAB
     Indication: PRODUCT USED FOR UNKNOWN INDICATION
     Dosage: UNK
     Route: 065
  3. SOLIRIS [Suspect]
     Active Substance: ECULIZUMAB
     Dosage: UNK, Q3W
     Route: 065

REACTIONS (2)
  - Drug ineffective [Unknown]
  - Renal impairment [Unknown]
